FAERS Safety Report 4475057-2 (Version None)
Quarter: 2004Q3

REPORT INFORMATION
  Report Type: 
  Country: None (occurrence: None)
  Receive Date: 20040923
  Receipt Date: 20040809
  Transmission Date: 20050211
  Serious: No
  Sender: FDA-Public Use
  Company Number: USA040875024

PATIENT
  Age: 72 Year
  Sex: Female
  Weight: 67 kg

DRUGS (1)
  1. FORTEO [Suspect]
     Indication: BONE DISORDER
     Dosage: 20 UG DAY
     Dates: start: 20040804

REACTIONS (3)
  - INJECTION SITE RASH [None]
  - RASH [None]
  - RASH PUSTULAR [None]
